FAERS Safety Report 10615629 (Version 2)
Quarter: 2014Q4

REPORT INFORMATION
  Report Type: Spontaneous
  Country: DE (occurrence: None)
  Receive Date: 20141125
  Receipt Date: 20141208
  Transmission Date: 20150529
  Serious: Yes (Congenital Anomaly, Other)
  Sender: FDA-Public Use
  Company Number: 2013098919

PATIENT
  Age: 1 Day
  Sex: Female
  Weight: 3 kg

DRUGS (6)
  1. OLMETEC (OLMESARTAN MEDOXOMIL) FLIM-COATED TABLET [Suspect]
     Active Substance: OLMESARTAN MEDOXOMIL
     Indication: HYPERTENSION
     Route: 064
     Dates: start: 20080915, end: 20090225
  2. CELESTAN (BETAMETHASONE) [Concomitant]
  3. METHYLDOPA (METHYLDOPA) [Concomitant]
     Active Substance: METHYLDOPA
  4. FRAGMIN P (HEPARIN-FRACTION, SODIUM SALT) [Concomitant]
  5. SIMVASTATIN (SIMVASTATIN) [Concomitant]
     Active Substance: SIMVASTATIN
  6. ASS (ACETYLSALICYLIC ACID) [Concomitant]

REACTIONS (5)
  - Ultrasound kidney abnormal [None]
  - Maternal drugs affecting foetus [None]
  - Caesarean section [None]
  - Pyelocaliectasis [None]
  - Premature baby [None]

NARRATIVE: CASE EVENT DATE: 2008
